FAERS Safety Report 10036365 (Version 1)
Quarter: 2014Q1

REPORT INFORMATION
  Report Type: Spontaneous
  Country: GB (occurrence: GB)
  Receive Date: 20140325
  Receipt Date: 20140325
  Transmission Date: 20141002
  Serious: Yes (Death)
  Sender: FDA-Public Use
  Company Number: GB-BAXTER-2014BAX014602

PATIENT
  Sex: 0

DRUGS (8)
  1. SODIUM CHLORIDE INTRAVENOUS INFUSION BP 0.9%W/V [Suspect]
     Indication: MEDICATION DILUTION
     Route: 065
     Dates: start: 20140312
  2. SODIUM CHLORIDE INTRAVENOUS INFUSION BP 0.9%W/V [Suspect]
     Route: 065
     Dates: start: 20140313
  3. SODIUM CHLORIDE INTRAVENOUS INFUSION BP 0.9%W/V [Suspect]
     Route: 065
     Dates: start: 20140314
  4. GLUCOSE 5% INTRAVENOUS INFUSION BP [Suspect]
     Indication: MEDICATION DILUTION
     Route: 065
     Dates: start: 20140312
  5. CARBOPLATIN [Suspect]
     Indication: PRODUCT USED FOR UNKNOWN INDICATION
     Route: 065
     Dates: start: 20140312
  6. ETOPOSIDE [Suspect]
     Indication: PRODUCT USED FOR UNKNOWN INDICATION
     Route: 065
     Dates: start: 20140312
  7. ETOPOSIDE [Suspect]
     Route: 065
     Dates: start: 20140313
  8. ETOPOSIDE [Suspect]
     Route: 065
     Dates: start: 20140314

REACTIONS (1)
  - Death [Fatal]
